FAERS Safety Report 5061342-2 (Version None)
Quarter: 2006Q3

REPORT INFORMATION
  Report Type: 
  Country: None (occurrence: None)
  Receive Date: 20060703
  Receipt Date: 20060328
  Transmission Date: 20061208
  Serious: No
  Sender: FDA-Public Use
  Company Number: 2006PV011088

PATIENT
  Age: 60 Year
  Sex: Female
  Weight: 111.1313 kg

DRUGS (6)
  1. SYMLIN [Suspect]
     Indication: DIABETES MELLITUS NON-INSULIN-DEPENDENT
     Dosage: SEE IMAGE
     Route: 058
     Dates: start: 20060320, end: 20060320
  2. SYMLIN [Suspect]
     Indication: DIABETES MELLITUS NON-INSULIN-DEPENDENT
     Dosage: SEE IMAGE
     Route: 058
     Dates: start: 20060321, end: 20060326
  3. GLUCOPHAGE [Concomitant]
  4. PRILOSEC [Concomitant]
  5. HUMULIN 70/30 [Concomitant]
  6. MINOCYCLINE HCL [Concomitant]

REACTIONS (7)
  - BLOOD GLUCOSE INCREASED [None]
  - CHEST DISCOMFORT [None]
  - ERUCTATION [None]
  - FLATULENCE [None]
  - GASTROOESOPHAGEAL REFLUX DISEASE [None]
  - HEADACHE [None]
  - PRE-EXISTING CONDITION IMPROVED [None]
